FAERS Safety Report 5804965-2 (Version None)
Quarter: 2008Q3

REPORT INFORMATION
  Report Type: 
  Country: None (occurrence: None)
  Receive Date: 20080709
  Receipt Date: 20080417
  Transmission Date: 20090109
  Serious: Yes (Other)
  Sender: FDA-Public Use
  Company Number: FR-ABBOTT-08P-056-0461126-00

PATIENT
  Sex: Male

DRUGS (1)
  1. ERYTHROMYCIN I.V. INJECTION [Suspect]
     Indication: PERTUSSIS
     Route: 042
     Dates: start: 20080110, end: 20080110

REACTIONS (2)
  - ACCIDENTAL OVERDOSE [None]
  - MEDICATION ERROR [None]
